FAERS Safety Report 18771505 (Version 1)
Quarter: 2021Q1

REPORT INFORMATION
  Report Type: Spontaneous
  Country: US (occurrence: US)
  Receive Date: 20210122
  Receipt Date: 20210122
  Transmission Date: 20210419
  Serious: No
  Sender: FDA-Public Use
  Company Number: US-PCCINC-2019-PEL-000448

PATIENT

DRUGS (2)
  1. GABLOFEN [Suspect]
     Active Substance: BACLOFEN
     Indication: CEREBRAL PALSY
  2. GABLOFEN [Suspect]
     Active Substance: BACLOFEN
     Indication: MUSCLE SPASTICITY
     Dosage: 632.7 MICROGRAM, PER DAY
     Route: 037

REACTIONS (4)
  - Withdrawal syndrome [Unknown]
  - Device malfunction [Unknown]
  - Muscle spasticity [Unknown]
  - Device infusion issue [Unknown]

NARRATIVE: CASE EVENT DATE: 20191118
